FAERS Safety Report 5692613-4 (Version None)
Quarter: 2008Q2

REPORT INFORMATION
  Report Type: 
  Country: None (occurrence: None)
  Receive Date: 20080402
  Receipt Date: 20080331
  Transmission Date: 20081010
  Serious: Yes (Disabling)
  Sender: FDA-Public Use
  Company Number: JP-BOEHRINGER INGELHEIM GMBH, GERMANY-2008-BP-04964NB

PATIENT

DRUGS (1)
  1. MICARDIS [Suspect]
     Route: 048
     Dates: start: 20060301, end: 20080301

REACTIONS (1)
  - PANCREATITIS [None]
